FAERS Safety Report 5610240-1 (Version None)
Quarter: 2008Q1

REPORT INFORMATION
  Report Type: 
  Country: None (occurrence: None)
  Receive Date: 20080131
  Receipt Date: 20080124
  Transmission Date: 20080703
  Serious: Yes (Other)
  Sender: FDA-Public Use
  Company Number: GB-ABBOTT-08P-167-0435000-00

PATIENT
  Age: 7 Year
  Sex: Male

DRUGS (2)
  1. EPILIM SYRUP [Suspect]
     Indication: MYOCLONUS
     Route: 048
     Dates: start: 20071001, end: 20080115
  2. EPILIM SYRUP [Suspect]
     Route: 048
     Dates: start: 20080116

REACTIONS (3)
  - DRUG INEFFECTIVE [None]
  - MYOCLONUS [None]
  - PSYCHOMOTOR HYPERACTIVITY [None]
